FAERS Safety Report 25889545 (Version 1)
Quarter: 2025Q4

REPORT INFORMATION
  Report Type: Spontaneous
  Country: US (occurrence: US)
  Receive Date: 20251007
  Receipt Date: 20251007
  Transmission Date: 20260117
  Serious: No
  Sender: KAMADA BIOPHARMACEUTICALS
  Company Number: US-KAMADA LIMITED- 2025-KAM-US000487

PATIENT

DRUGS (2)
  1. KEDRAB [Suspect]
     Active Substance: HUMAN RABIES VIRUS IMMUNE GLOBULIN
     Indication: Rabies immunisation
     Dosage: UNK
     Dates: start: 20241110
  2. RABIES VACCINE [Suspect]
     Active Substance: RABIES VACCINE
     Indication: Product used for unknown indication
     Dosage: UNK

REACTIONS (1)
  - Head discomfort [Not Recovered/Not Resolved]

NARRATIVE: CASE EVENT DATE: 20241119
